FAERS Safety Report 25258313 (Version 1)
Quarter: 2025Q2

REPORT INFORMATION
  Report Type: Spontaneous
  Country: US (occurrence: US)
  Receive Date: 20250501
  Receipt Date: 20250501
  Transmission Date: 20250716
  Serious: Yes (Other)
  Sender: SPECGX
  Company Number: US-SPECGX-T202500844

PATIENT

DRUGS (1)
  1. PAMELOR [Suspect]
     Active Substance: NORTRIPTYLINE HYDROCHLORIDE
     Indication: Major depression
     Route: 065

REACTIONS (2)
  - Angina pectoris [Unknown]
  - Electrocardiogram ST segment abnormal [Unknown]
